FAERS Safety Report 15791792 (Version 2)
Quarter: 2019Q1

REPORT INFORMATION
  Report Type: Spontaneous
  Country: US (occurrence: US)
  Receive Date: 20190105
  Receipt Date: 20190220
  Transmission Date: 20190417
  Serious: No
  Sender: FDA-Public Use
  Company Number: US-TEVA-2018-US-988328

PATIENT

DRUGS (1)
  1. NORETHINDRONE W/ETHINYLESTRADIOL [Suspect]
     Active Substance: ETHINYL ESTRADIOL\NORETHINDRONE
     Route: 065

REACTIONS (4)
  - Ill-defined disorder [Unknown]
  - Arthritis [Unknown]
  - Product substitution issue [Unknown]
  - Nausea [Unknown]
